FAERS Safety Report 6328247-8 (Version None)
Quarter: 2009Q3

REPORT INFORMATION
  Report Type: 
  Country: None (occurrence: None)
  Receive Date: 20090825
  Receipt Date: 20090203
  Transmission Date: 20100115
  Serious: No
  Sender: FDA-Public Use
  Company Number: US-ABBOTT-09P-163-0501792-00

PATIENT
  Sex: Female

DRUGS (1)
  1. SYNTHROID [Suspect]
     Indication: THYROIDECTOMY
     Dates: start: 19950101

REACTIONS (6)
  - DRY EYE [None]
  - FATIGUE [None]
  - MOOD SWINGS [None]
  - PAIN [None]
  - PHOTOPHOBIA [None]
  - TEMPERATURE INTOLERANCE [None]
